FAERS Safety Report 6609955-8 (Version None)
Quarter: 2010Q1

REPORT INFORMATION
  Report Type: 
  Country: None (occurrence: None)
  Receive Date: 20100302
  Receipt Date: 20100224
  Transmission Date: 20100710
  Serious: Yes (Death, Hospitalization)
  Sender: FDA-Public Use
  Company Number: PHHY2010DE07334

PATIENT
  Sex: Male

DRUGS (4)
  1. STI571/CGP57148B T35717+TAB [Suspect]
     Indication: CHRONIC MYELOID LEUKAEMIA
     Dosage: 400 MG DAILY
     Route: 048
     Dates: start: 20061204, end: 20061207
  2. STI571/CGP57148B T35717+TAB [Suspect]
     Dosage: 400 MG, QOD
     Route: 048
     Dates: start: 20061213, end: 20070117
  3. STI571/CGP57148B T35717+TAB [Suspect]
     Dosage: 400 MG DAILY
     Route: 048
     Dates: start: 20070118, end: 20070313
  4. STI571/CGP57148B T35717+TAB [Suspect]
     Dosage: 400 MG, QOD
     Route: 048
     Dates: start: 20070314

REACTIONS (5)
  - BRONCHOPULMONARY ASPERGILLOSIS [None]
  - GENERAL PHYSICAL HEALTH DETERIORATION [None]
  - NEUTROPENIA [None]
  - PANCYTOPENIA [None]
  - PYREXIA [None]
